FAERS Safety Report 13284887 (Version 1)
Quarter: 2017Q1

REPORT INFORMATION
  Report Type: Spontaneous
  Country: US (occurrence: US)
  Receive Date: 20170301
  Receipt Date: 20170301
  Transmission Date: 20170428
  Serious: Yes (Hospitalization)
  Sender: FDA-Public Use
  Company Number: None

PATIENT
  Age: 66 Year
  Sex: Male

DRUGS (11)
  1. OPSUMIT [Concomitant]
     Active Substance: MACITENTAN
  2. METFORMIN [Concomitant]
     Active Substance: METFORMIN HYDROCHLORIDE
  3. VASOTEC [Concomitant]
     Active Substance: ENALAPRIL MALEATE
  4. MOBIC [Concomitant]
     Active Substance: MELOXICAM
  5. COREG [Concomitant]
     Active Substance: CARVEDILOL
  6. AMARYL [Concomitant]
     Active Substance: GLIMEPIRIDE
  7. XANAX [Concomitant]
     Active Substance: ALPRAZOLAM
  8. LASIX [Concomitant]
     Active Substance: FUROSEMIDE
  9. TEMAZEPAM. [Concomitant]
     Active Substance: TEMAZEPAM
  10. SPIRNOLACTONE [Concomitant]
  11. SILDENAFIL 20 MG TABLET PFIZER [Suspect]
     Active Substance: SILDENAFIL
     Indication: PULMONARY HYPERTENSION
     Route: 048
     Dates: start: 20160112

REACTIONS (1)
  - Pulmonary hypertension [None]

NARRATIVE: CASE EVENT DATE: 20170222
